FAERS Safety Report 17040010 (Version 17)
Quarter: 2020Q4

REPORT INFORMATION
  Report Type: Report from Study
  Country: None (occurrence: SE)
  Receive Date: 20191116
  Receipt Date: 20201011
  Transmission Date: 20210113
  Serious: Yes (Hospitalization, Other)
  Sender: FDA-Public Use
  Company Number: SE-ABBVIE-19K-150-3002938-00

PATIENT
  Age: 70 Year
  Sex: Female

DRUGS (15)
  1. DUODOPA [Suspect]
     Active Substance: CARBIDOPA\LEVODOPA
     Dosage: CURRENT DOSAGE: MD: 5.0 ML, CD: 2.4 ML/H BETWEEN 06:00-10:30 AND THEN 2.4 ML/H, ED: 0.8 ML
     Route: 050
     Dates: start: 20191108
  2. DUODOPA [Suspect]
     Active Substance: CARBIDOPA\LEVODOPA
     Dosage: EXTRA DOSE INCREASED FROM 0.8 ML TO 1.0 ML.
     Route: 050
     Dates: start: 20200903, end: 202009
  3. CORTISONE [Concomitant]
     Active Substance: CORTISONE
     Indication: MYALGIA
  4. DUODOPA [Suspect]
     Active Substance: CARBIDOPA\LEVODOPA
     Route: 050
     Dates: start: 20171211
  5. DUODOPA [Suspect]
     Active Substance: CARBIDOPA\LEVODOPA
     Dosage: MORNING DOSE: 6 ML?CONTINUOUS DOSE: 2.4 ML/H?EXTRA DOSE: 0.8 ML
     Route: 050
     Dates: start: 2020, end: 2020
  6. DUODOPA [Suspect]
     Active Substance: CARBIDOPA\LEVODOPA
     Indication: PARKINSON^S DISEASE
     Dosage: CURRENT DOSAGE:?MORNING DOSE: 6 ML?CONTINUOUS DOSE: 2.4 ML/H?EXTRA DOSE: 0.8 ML
     Route: 050
     Dates: start: 20171127
  7. DUODOPA [Suspect]
     Active Substance: CARBIDOPA\LEVODOPA
     Dosage: CONTINUOUS DOSE INCREASED FROM 2.5 ML/H TO 2.6 ML/H
     Route: 050
     Dates: start: 20200825
  8. DUODOPA [Suspect]
     Active Substance: CARBIDOPA\LEVODOPA
     Dosage: CONTINUOUS DOSE INCREASED FROM 2.6 ML/H TO 2.8 ML/H. REMAINS AT 16H.
     Route: 050
     Dates: start: 20200904
  9. DUODOPA [Suspect]
     Active Substance: CARBIDOPA\LEVODOPA
     Dosage: MORNING DOSE WAS INCREASED FROM 5.0 ML/H TO 5.5 ML/H
     Route: 050
     Dates: start: 20200219, end: 2020
  10. DUODOPA [Suspect]
     Active Substance: CARBIDOPA\LEVODOPA
     Dosage: MORNING DOSE IS DECREASED FROM 5.5 ML TO 5.0 ML
     Route: 050
     Dates: start: 2020, end: 2020
  11. MORPHINE [Concomitant]
     Active Substance: MORPHINE
     Indication: PAIN
     Route: 065
  12. DUODOPA [Suspect]
     Active Substance: CARBIDOPA\LEVODOPA
     Dosage: CONTINUOUS DOSE DECREASED FROM 2.4 ML/H TO 2.3 ML/H
     Route: 050
     Dates: start: 20200401, end: 2020
  13. DUODOPA [Suspect]
     Active Substance: CARBIDOPA\LEVODOPA
     Dosage: CURRENT DOSAGE: MORNING DOSE: 5.0 ML, CONTINUOUS DOSE: 2.4 ML/H, EXTRA DOSE: 0.8 ML
     Route: 050
     Dates: start: 20200512, end: 2020
  14. CITALOPRAM [Concomitant]
     Active Substance: CITALOPRAM HYDROBROMIDE
     Indication: PRODUCT USED FOR UNKNOWN INDICATION
  15. PREDNISOLONE. [Concomitant]
     Active Substance: PREDNISOLONE
     Indication: MYALGIA
     Dosage: DOSE INCREASED FROM 10 MG TO 15 MG.

REACTIONS (33)
  - Hip arthroplasty [Unknown]
  - Intentional product misuse [Not Recovered/Not Resolved]
  - Fatigue [Unknown]
  - Headache [Recovering/Resolving]
  - Post procedural infection [Not Recovered/Not Resolved]
  - Musculoskeletal disorder [Not Recovered/Not Resolved]
  - Post procedural infection [Not Recovered/Not Resolved]
  - Post procedural swelling [Recovered/Resolved]
  - Myalgia [Unknown]
  - Infection [Unknown]
  - Intentional product misuse [Recovered/Resolved]
  - Wound dehiscence [Recovered/Resolved]
  - Patient-device incompatibility [Unknown]
  - Swelling [Unknown]
  - Hip surgery [Not Recovered/Not Resolved]
  - Dyskinesia [Not Recovered/Not Resolved]
  - Post procedural drainage [Not Recovered/Not Resolved]
  - Depression [Not Recovered/Not Resolved]
  - Nausea [Unknown]
  - Depressed mood [Not Recovered/Not Resolved]
  - Anxiety [Recovering/Resolving]
  - Postoperative abscess [Not Recovered/Not Resolved]
  - Muscular weakness [Not Recovered/Not Resolved]
  - Musculoskeletal stiffness [Not Recovered/Not Resolved]
  - Arthralgia [Not Recovered/Not Resolved]
  - Pain [Not Recovered/Not Resolved]
  - Therapeutic product effect incomplete [Unknown]
  - Hyperkinesia [Recovering/Resolving]
  - Wound dehiscence [Recovered/Resolved]
  - Pyrexia [Recovered/Resolved]
  - Joint abscess [Recovered/Resolved]
  - Hyperhidrosis [Unknown]
  - On and off phenomenon [Not Recovered/Not Resolved]

NARRATIVE: CASE EVENT DATE: 2019
